FAERS Safety Report 25317709 (Version 3)
Quarter: 2025Q4

REPORT INFORMATION
  Report Type: Report from Study
  Country: US (occurrence: US)
  Receive Date: 20250515
  Receipt Date: 20251018
  Transmission Date: 20260117
  Serious: Yes (Other)
  Sender: ABBVIE
  Company Number: US-ABBVIE-6281041

PATIENT
  Age: 69 Year
  Sex: Female
  Weight: 143 kg

DRUGS (2)
  1. SKYRIZI [Suspect]
     Active Substance: RISANKIZUMAB-RZAA
     Indication: Psoriasis
     Route: 058
     Dates: start: 20240918, end: 202412
  2. SKYRIZI [Suspect]
     Active Substance: RISANKIZUMAB-RZAA
     Route: 058
     Dates: start: 20250510

REACTIONS (5)
  - Tooth extraction [Unknown]
  - Diabetic foot [Recovering/Resolving]
  - Influenza [Recovering/Resolving]
  - Tooth infection [Unknown]
  - Cataract [Unknown]

NARRATIVE: CASE EVENT DATE: 20240901
